FAERS Safety Report 5029185-3 (Version None)
Quarter: 2006Q2

REPORT INFORMATION
  Report Type: 
  Country: None (occurrence: None)
  Receive Date: 20060613
  Receipt Date: 20060531
  Transmission Date: 20061013
  Serious: Yes (Disabling, Other)
  Sender: FDA-Public Use
  Company Number: HQWYE617801JUN06

PATIENT
  Age: 60 Year
  Sex: Female

DRUGS (4)
  1. PANTOLOC (PANTOPRAZOLE, INJECTION) [Suspect]
     Indication: DUODENITIS
     Dosage: 40 MG 1X PER 1 DAY; INTRAVENOUS; 80 MG 1X PER 1 DAY; INTRAVENOUS
     Route: 042
     Dates: start: 20060428, end: 20060428
  2. PANTOLOC (PANTOPRAZOLE, INJECTION) [Suspect]
     Indication: GASTRITIS
     Dosage: 40 MG 1X PER 1 DAY; INTRAVENOUS; 80 MG 1X PER 1 DAY; INTRAVENOUS
     Route: 042
     Dates: start: 20060428, end: 20060428
  3. PANTOLOC (PANTOPRAZOLE, INJECTION) [Suspect]
     Indication: DUODENITIS
     Dosage: 40 MG 1X PER 1 DAY; INTRAVENOUS; 80 MG 1X PER 1 DAY; INTRAVENOUS
     Route: 042
     Dates: start: 20060429, end: 20060429
  4. PANTOLOC (PANTOPRAZOLE, INJECTION) [Suspect]
     Indication: GASTRITIS
     Dosage: 40 MG 1X PER 1 DAY; INTRAVENOUS; 80 MG 1X PER 1 DAY; INTRAVENOUS
     Route: 042
     Dates: start: 20060429, end: 20060429

REACTIONS (2)
  - DIARRHOEA [None]
  - HYPOKALAEMIA [None]
